FAERS Safety Report 7472645-6 (Version None)
Quarter: 2011Q2

REPORT INFORMATION
  Report Type: 
  Country: None (occurrence: None)
  Receive Date: 20110502
  Receipt Date: 20110413
  Transmission Date: 20111010
  Serious: Yes (Other)
  Sender: FDA-Public Use
  Company Number: 031630

PATIENT
  Sex: Female

DRUGS (2)
  1. CORTICOSTEROID NOS (STEROID) [Suspect]
     Dosage: (HIGH STEROID USE)
  2. CIMZIA [Suspect]
     Dosage: (200 MG, STANDARD DOSE SUBCUTANEOUS)
     Route: 058

REACTIONS (1)
  - GASTROINTESTINAL CANDIDIASIS [None]
